FAERS Safety Report 12788283 (Version 1)
Quarter: 2016Q3

REPORT INFORMATION
  Report Type: Spontaneous
  Country: TR (occurrence: TR)
  Receive Date: 20160928
  Receipt Date: 20160928
  Transmission Date: 20161109
  Serious: Yes (Other)
  Sender: FDA-Public Use
  Company Number: TR-GLENMARK PHARMACEUTICALS INC, USA.-2016GMK024400

PATIENT
  Age: 67 Year
  Sex: Male

DRUGS (4)
  1. LEVODOPA BENSERAZIDE [Concomitant]
     Active Substance: BENSERAZIDE\LEVODOPA
     Indication: PARKINSON^S DISEASE
     Dosage: 375 MG, QD
     Route: 065
     Dates: start: 1996
  2. PRAMIPEXOLE DIHYDROCHLORIDE. [Suspect]
     Active Substance: PRAMIPEXOLE DIHYDROCHLORIDE
     Dosage: 1 MG, QD
     Route: 065
  3. ENTACAPONE. [Concomitant]
     Active Substance: ENTACAPONE
     Indication: PARKINSON^S DISEASE
     Dosage: UNK
     Dates: start: 1996
  4. PRAMIPEXOLE DIHYDROCHLORIDE. [Suspect]
     Active Substance: PRAMIPEXOLE DIHYDROCHLORIDE
     Indication: PARKINSON^S DISEASE
     Dosage: 0.5 MG, QD
     Route: 065

REACTIONS (4)
  - Libido increased [Recovered/Resolved]
  - Delusion [Recovered/Resolved]
  - Substance-induced mood disorder [Recovered/Resolved]
  - Mania [Recovered/Resolved]
